FAERS Safety Report 4431102-1 (Version None)
Quarter: 2004Q3

REPORT INFORMATION
  Report Type: 
  Country: None (occurrence: None)
  Receive Date: 20040817
  Receipt Date: 20040809
  Transmission Date: 20050211
  Serious: Yes (Life-Threatening, Hospitalization)
  Sender: FDA-Public Use
  Company Number: 6009938F

PATIENT
  Age: 57 Year
  Sex: Male

DRUGS (2)
  1. NIASPAN [Suspect]
     Indication: DYSLIPIDAEMIA
     Dosage: 375 MG QD PO
     Route: 048
     Dates: start: 20040623, end: 20040703
  2. CITALOPRAM [Suspect]
     Indication: DEPRESSION
     Dosage: 20 MG QD PO
     Route: 048
     Dates: start: 20040625, end: 20040703

REACTIONS (4)
  - ANAPHYLACTIC REACTION [None]
  - BURNING SENSATION [None]
  - CIRCULATORY COLLAPSE [None]
  - PRURITUS [None]
